APPROVED DRUG PRODUCT: THEOPHYLLINE
Active Ingredient: THEOPHYLLINE
Strength: 300MG
Dosage Form/Route: TABLET, EXTENDED RELEASE;ORAL
Application: A089763 | Product #001 | TE Code: AB
Applicant: HERITAGE PHARMA LABS INC DBA AVET PHARMACEUTICALS LABS INC
Approved: Apr 30, 1990 | RLD: No | RS: No | Type: RX